FAERS Safety Report 6254703-7 (Version None)
Quarter: 2009Q3

REPORT INFORMATION
  Report Type: 
  Country: None (occurrence: None)
  Receive Date: 20090702
  Receipt Date: 20090702
  Transmission Date: 20100115
  Serious: Yes (Other)
  Sender: FDA-Public Use
  Company Number: US-PFIZER INC-2009164009

PATIENT
  Sex: Male

DRUGS (1)
  1. VIAGRA [Suspect]
     Indication: ERECTILE DYSFUNCTION
     Dosage: 100 MG, UNK
     Dates: start: 20090201

REACTIONS (4)
  - ABDOMINAL DISCOMFORT [None]
  - DEMENTIA ALZHEIMER'S TYPE [None]
  - ERECTION INCREASED [None]
  - FLUSHING [None]
